FAERS Safety Report 8597402-9 (Version None)
Quarter: 2012Q3

REPORT INFORMATION
  Report Type: 
  Country: None (occurrence: None)
  Receive Date: 20120801
  Receipt Date: 20120718
  Transmission Date: 20120928
  Serious: Yes (Other)
  Sender: FDA-Public Use
  Company Number: TR-20120076

PATIENT
  Age: 61 Year
  Sex: Male

DRUGS (1)
  1. HEXABRIX [Suspect]
     Indication: ANGIOGRAM
     Dosage: 100 ML (100 ML, 1 IN 1 TOTAL)

REACTIONS (2)
  - HAEMODIALYSIS [None]
  - SIALOADENITIS [None]
